FAERS Safety Report 4710882-1 (Version None)
Quarter: 2005Q3

REPORT INFORMATION
  Report Type: 
  Country: None (occurrence: None)
  Receive Date: 20050711
  Receipt Date: 20050705
  Transmission Date: 20060218
  Serious: Yes (Other)
  Sender: FDA-Public Use
  Company Number: 408694

PATIENT
  Age: 81 Year
  Sex: Male

DRUGS (1)
  1. CARVEDILOL [Suspect]
     Indication: DRUG USE FOR UNKNOWN INDICATION
     Dosage: 3.25MG TWICE PER DAY
     Route: 048
     Dates: start: 20030615

REACTIONS (2)
  - BREAST PAIN [None]
  - GYNAECOMASTIA [None]
